FAERS Safety Report 11628807 (Version 4)
Quarter: 2016Q2

REPORT INFORMATION
  Report Type: Spontaneous
  Country: US (occurrence: US)
  Receive Date: 20151014
  Receipt Date: 20160418
  Transmission Date: 20160815
  Serious: Yes (Other)
  Sender: FDA-Public Use
  Company Number: US-ASTRAZENECA-2012SE74500

PATIENT
  Age: 59 Year
  Sex: Female
  Weight: 108.9 kg

DRUGS (60)
  1. PLAVIX [Concomitant]
     Active Substance: CLOPIDOGREL BISULFATE
     Dates: start: 20070829
  2. WELCHOL [Concomitant]
     Active Substance: COLESEVELAM HYDROCHLORIDE
     Dates: start: 20100305
  3. DICYCLOMINE HCL [Concomitant]
     Active Substance: DICYCLOMINE HYDROCHLORIDE
     Dates: start: 20130919
  4. METOLAZONE. [Concomitant]
     Active Substance: METOLAZONE
     Dates: start: 20141017
  5. CRESTOR [Suspect]
     Active Substance: ROSUVASTATIN CALCIUM
     Indication: BLOOD CHOLESTEROL INCREASED
     Route: 048
     Dates: start: 20050726
  6. CEPHALEXIN. [Concomitant]
     Active Substance: CEPHALEXIN
     Dates: start: 20111001
  7. MISOPROSTOL. [Concomitant]
     Active Substance: MISOPROSTOL
     Route: 048
     Dates: start: 20121024
  8. NEURONTIN [Concomitant]
     Active Substance: GABAPENTIN
     Dates: start: 20050701
  9. LEVOXYL/SYNTHROID [Concomitant]
     Dates: start: 20050726
  10. METRONIDAZOLE. [Concomitant]
     Active Substance: METRONIDAZOLE
     Dates: start: 20120809
  11. CREON [Concomitant]
     Active Substance: PANCRELIPASE AMYLASE\PANCRELIPASE LIPASE\PANCRELIPASE PROTEASE
     Dates: start: 20120809
  12. SYMBICORT [Concomitant]
     Active Substance: BUDESONIDE\FORMOTEROL FUMARATE DIHYDRATE
     Dosage: 160-4.5MCG
     Dates: start: 20150713
  13. FLUCONAZOLE. [Concomitant]
     Active Substance: FLUCONAZOLE
     Dates: start: 20060121
  14. HYDROXYZINE [Concomitant]
     Active Substance: HYDROXYZINE\HYDROXYZINE HYDROCHLORIDE
     Dates: start: 20060301
  15. AVAPRO [Concomitant]
     Active Substance: IRBESARTAN
     Dates: start: 20070306
  16. LEVAQUIN [Concomitant]
     Active Substance: LEVOFLOXACIN
     Dates: start: 20070829
  17. JANUVIA [Concomitant]
     Active Substance: SITAGLIPTIN PHOSPHATE
     Dates: start: 20110402
  18. NAPROXEN. [Concomitant]
     Active Substance: NAPROXEN
     Dates: start: 20111227
  19. ASPIRIN. [Concomitant]
     Active Substance: ASPIRIN
     Dates: start: 20060328
  20. PROTONIX [Concomitant]
     Active Substance: PANTOPRAZOLE SODIUM
     Dates: start: 20070829
  21. VITAMIN D [Concomitant]
     Active Substance: CHOLECALCIFEROL
     Dates: start: 20100123
  22. MINTOX PLUS [Concomitant]
     Dates: start: 20100305
  23. NEXIUM [Concomitant]
     Active Substance: ESOMEPRAZOLE MAGNESIUM
     Dates: start: 20150603
  24. STARLIX [Concomitant]
     Active Substance: NATEGLINIDE
     Route: 048
     Dates: start: 20140315
  25. ULTRAM [Concomitant]
     Active Substance: TRAMADOL HYDROCHLORIDE
     Dates: start: 20060222
  26. TYLENOL [Concomitant]
     Active Substance: ACETAMINOPHEN
     Dates: start: 20060118
  27. ACTOS [Concomitant]
     Active Substance: PIOGLITAZONE HYDROCHLORIDE
     Dates: start: 20060321
  28. SINGULAIR [Concomitant]
     Active Substance: MONTELUKAST SODIUM
     Dates: start: 20080121
  29. DONEPEZIL HYDROCHLORIDE. [Concomitant]
     Active Substance: DONEPEZIL HYDROCHLORIDE
     Dates: start: 20111227
  30. SUCRALFATE. [Concomitant]
     Active Substance: SUCRALFATE
     Dates: start: 20130311
  31. BYDUREON [Concomitant]
     Active Substance: EXENATIDE
     Dates: start: 20130624
  32. PSEUDOEPHEDRINE [Concomitant]
     Active Substance: PSEUDOEPHEDRINE
     Dates: start: 20050726
  33. ONGLYZA [Concomitant]
     Active Substance: SAXAGLIPTIN HYDROCHLORIDE
     Dates: start: 20160115
  34. LIPITOR [Concomitant]
     Active Substance: ATORVASTATIN CALCIUM
     Dates: start: 1995, end: 200602
  35. CILOSTAZOL. [Concomitant]
     Active Substance: CILOSTAZOL
     Dates: start: 20070829
  36. METFORMIN HYDROCHLORIDE. [Concomitant]
     Active Substance: METFORMIN HYDROCHLORIDE
     Dates: start: 20070829
  37. LANSOPRAZOLE. [Concomitant]
     Active Substance: LANSOPRAZOLE
     Dates: start: 20111004
  38. DICLOFENAC SODIUM. [Concomitant]
     Active Substance: DICLOFENAC SODIUM
     Dates: start: 20121024
  39. LYRICA [Concomitant]
     Active Substance: PREGABALIN
     Dates: start: 20151106
  40. PREDNISONE. [Concomitant]
     Active Substance: PREDNISONE
     Dates: start: 20160113
  41. ACETAMINOPHENE [Concomitant]
     Dates: start: 20060301
  42. LASIX [Concomitant]
     Active Substance: FUROSEMIDE
     Dates: start: 20060328
  43. OYSTER SHELL CALCIUM WITH VITAMIN D [Concomitant]
     Active Substance: CALCIUM\CHOLECALCIFEROL
     Dates: start: 20061012
  44. FOLIC ACID. [Concomitant]
     Active Substance: FOLIC ACID
     Dates: start: 20061121
  45. CELEBREX [Concomitant]
     Active Substance: CELECOXIB
     Dates: start: 20061216
  46. ALPRAZOLAM. [Concomitant]
     Active Substance: ALPRAZOLAM
     Dates: start: 20070703
  47. LEXAPRO [Concomitant]
     Active Substance: ESCITALOPRAM OXALATE
     Dates: start: 20070925
  48. LORATADINE. [Concomitant]
     Active Substance: LORATADINE
     Dates: start: 20100511
  49. MOBIC [Concomitant]
     Active Substance: MELOXICAM
     Dates: start: 20051012
  50. NYSTATIN. [Concomitant]
     Active Substance: NYSTATIN
     Route: 048
     Dates: start: 20051109
  51. ARTHROTEC [Concomitant]
     Active Substance: DICLOFENAC SODIUM\MISOPROSTOL
     Dosage: 50-0.2 MG
     Dates: start: 20121024
  52. CRESTOR [Suspect]
     Active Substance: ROSUVASTATIN CALCIUM
     Indication: BLOOD CHOLESTEROL INCREASED
     Route: 048
     Dates: start: 1998
  53. CRESTOR [Suspect]
     Active Substance: ROSUVASTATIN CALCIUM
     Indication: BLOOD CHOLESTEROL INCREASED
     Route: 048
     Dates: start: 20140224
  54. ATENOLOL. [Concomitant]
     Active Substance: ATENOLOL
     Indication: HYPERTENSION
     Dates: start: 20060417
  55. GLIMEPIRIDE. [Concomitant]
     Active Substance: GLIMEPIRIDE
     Dates: start: 20100123
  56. SULFATRIM [Concomitant]
     Active Substance: SULFAMETHOXAZOLE\TRIMETHOPRIM
     Dosage: 160-800 MG
     Dates: start: 20120421
  57. RAMIPRIL. [Concomitant]
     Active Substance: RAMIPRIL
     Dates: start: 20121126
  58. POTASSIUM CHLORIDE. [Concomitant]
     Active Substance: POTASSIUM CHLORIDE
     Dates: start: 20060328
  59. JANUMET [Concomitant]
     Active Substance: METFORMIN HYDROCHLORIDE\SITAGLIPTIN PHOSPHATE
     Dosage: 50-500 MG
     Dates: start: 20141031
  60. METHOTREXATE [Concomitant]
     Active Substance: METHOTREXATE
     Dates: start: 20160115

REACTIONS (3)
  - Hypertension [Not Recovered/Not Resolved]
  - Type 2 diabetes mellitus [Not Recovered/Not Resolved]
  - Acute myocardial infarction [Unknown]

NARRATIVE: CASE EVENT DATE: 2002
